FAERS Safety Report 14249862 (Version 1)
Quarter: 2017Q4

REPORT INFORMATION
  Report Type: Report from Study
  Country: US (occurrence: US)
  Receive Date: 20171205
  Receipt Date: 20171205
  Transmission Date: 20180321
  Serious: Yes (Other)
  Sender: FDA-Public Use
  Company Number: PHEH2014US020175

PATIENT
  Sex: Male

DRUGS (8)
  1. GLEEVEC [Interacting]
     Active Substance: IMATINIB MESYLATE
     Dosage: 400 MG DAILY ALTERNATING WITH 200 MG DAILY
     Route: 048
  2. GLEEVEC [Interacting]
     Active Substance: IMATINIB MESYLATE
     Dosage: 300 MG, QD
     Route: 048
  3. PROTON PUMP INHIBITORS [Interacting]
     Active Substance: UNSPECIFIED INGREDIENT
     Indication: PRODUCT USED FOR UNKNOWN INDICATION
     Route: 065
  4. GLEEVEC [Interacting]
     Active Substance: IMATINIB MESYLATE
     Dosage: 300 MG, QD
     Route: 048
  5. GLEEVEC [Interacting]
     Active Substance: IMATINIB MESYLATE
     Dosage: 200 MG, QD
     Route: 048
  6. GLEEVEC [Interacting]
     Active Substance: IMATINIB MESYLATE
     Dosage: 100 MG, BID
     Route: 048
  7. GLEEVEC [Interacting]
     Active Substance: IMATINIB MESYLATE
     Dosage: 400 MG, QD
     Route: 048
  8. GLEEVEC [Suspect]
     Active Substance: IMATINIB MESYLATE
     Indication: CHRONIC MYELOID LEUKAEMIA
     Dosage: 400 MG, QD
     Route: 048
     Dates: start: 2012

REACTIONS (15)
  - Wrong technique in product usage process [Unknown]
  - Cough [Unknown]
  - Leukocytosis [Unknown]
  - Arthritis [Unknown]
  - Chronic myeloid leukaemia recurrent [Unknown]
  - Dyspnoea exertional [Unknown]
  - Chest pain [Unknown]
  - Drug ineffective [Unknown]
  - Malignant neoplasm progression [Unknown]
  - Drug prescribing error [Unknown]
  - Underdose [Recovering/Resolving]
  - Anaemia [Recovered/Resolved]
  - Nasopharyngitis [Unknown]
  - Chronic myeloid leukaemia [Unknown]
  - Drug interaction [Recovering/Resolving]
